FAERS Safety Report 4482773-5 (Version None)
Quarter: 2004Q3

REPORT INFORMATION
  Report Type: 
  Country: None (occurrence: None)
  Receive Date: 20040921
  Receipt Date: 20040716
  Transmission Date: 20050211
  Serious: Yes (Hospitalization)
  Sender: FDA-Public Use
  Company Number: 163-20785-04070446(0)

PATIENT
  Age: 56 Year
  Sex: Male

DRUGS (9)
  1. THALOMID [Suspect]
     Indication: MULTIPLE MYELOMA
     Dosage: 200 MG, DAILY, ORAL
     Route: 048
     Dates: start: 20040622, end: 20040625
  2. BORTEZOMIB (BORTEZOMIB) [Suspect]
     Indication: MULTIPLE MYELOMA
     Dosage: 2 MG, UNKNOWN, INTRAVENOUS
     Route: 042
     Dates: start: 20040619, end: 20040619
  3. BORTEZOMIB (BORTEZOMIB) [Suspect]
     Indication: MULTIPLE MYELOMA
     Dosage: 2 MG, UNKNOWN, INTRAVENOUS
     Route: 042
     Dates: start: 20040622, end: 20040622
  4. BORTEZOMIB (BORTEZOMIB) [Suspect]
     Indication: MULTIPLE MYELOMA
     Dosage: 2 MG, UNKNOWN, INTRAVENOUS
     Route: 042
     Dates: start: 20040626, end: 20040626
  5. BORTEZOMIB (BORTEZOMIB) [Suspect]
     Indication: MULTIPLE MYELOMA
     Dosage: 2 MG, UNKNOWN, INTRAVENOUS
     Route: 042
     Dates: start: 20040629, end: 20040629
  6. DEXAMETHASONE [Suspect]
     Indication: MULTIPLE MYELOMA
     Dosage: 40 MG, DAILY, ORAL
     Route: 048
     Dates: start: 20040622, end: 20040625
  7. ADRIAMYCIN PFS [Suspect]
     Indication: MULTIPLE MYELOMA
     Dosage: 19 MG, DAILY, INTRAVENOUS
     Route: 042
     Dates: start: 20040622, end: 20040625
  8. ETOPOSIDE [Suspect]
     Indication: MULTIPLE MYELOMA
     Dosage: 75 MG, DAILY, INTRAVENOUS
     Route: 042
     Dates: start: 20040622, end: 20050625
  9. CYCLOPHOSPHAMIDE [Suspect]
     Indication: MULTIPLE MYELOMA
     Dosage: 752 MG, DAILY, INTRAVENOUS
     Route: 042
     Dates: start: 20040622, end: 20040625

REACTIONS (2)
  - DEHYDRATION [None]
  - SYNCOPE [None]
